FAERS Safety Report 4578191-1 (Version None)
Quarter: 2005Q1

REPORT INFORMATION
  Report Type: 
  Country: None (occurrence: None)
  Receive Date: 20050201
  Receipt Date: 20050201
  Transmission Date: 20050727
  Serious: Yes (Other)
  Sender: FDA-Public Use
  Company Number: None

PATIENT

DRUGS (1)
  1. WELLBUTRIN XL [Suspect]
     Dosage: 1 PO DAILY
     Route: 048

REACTIONS (2)
  - NAUSEA [None]
  - VOMITING [None]
